FAERS Safety Report 19125982 (Version 1)
Quarter: 2021Q2

REPORT INFORMATION
  Report Type: Spontaneous
  Country: CN (occurrence: CN)
  Receive Date: 20210413
  Receipt Date: 20210413
  Transmission Date: 20210717
  Serious: Yes (Other)
  Sender: FDA-Public Use
  Company Number: CN-ACCORD-221997

PATIENT
  Age: 12 Year
  Sex: Male

DRUGS (3)
  1. CARBOPLATIN. [Suspect]
     Active Substance: CARBOPLATIN
     Indication: NEUROFIBROSARCOMA
  2. FLUOROURACIL. [Suspect]
     Active Substance: FLUOROURACIL
     Indication: NEUROFIBROSARCOMA
  3. IFOSFAMIDE. [Suspect]
     Active Substance: IFOSFAMIDE
     Indication: NEUROFIBROSARCOMA

REACTIONS (3)
  - Red blood cell count decreased [Unknown]
  - Platelet count decreased [Unknown]
  - Granulocyte count decreased [Unknown]
